FAERS Safety Report 6012343-9 (Version None)
Quarter: 2008Q4

REPORT INFORMATION
  Report Type: 
  Country: None (occurrence: None)
  Receive Date: 20081218
  Receipt Date: 20080826
  Transmission Date: 20090506
  Serious: No
  Sender: FDA-Public Use
  Company Number: US-ASTRAZENECA-2008UW17510

PATIENT
  Age: 67 Year
  Sex: Male

DRUGS (6)
  1. SYMBICORT [Suspect]
     Indication: CHRONIC OBSTRUCTIVE PULMONARY DISEASE
     Dosage: 2 X (160/4.5 MCG) TWICE A DAY
     Route: 055
     Dates: start: 20080604, end: 20080815
  2. HYDROCHLOROTHIAZIDE [Concomitant]
  3. SYNTHROID [Concomitant]
  4. LOVAZA [Concomitant]
  5. OXYGEN [Concomitant]
  6. HIGH BLOOD PRESSURE DRUG [Concomitant]

REACTIONS (8)
  - BRONCHIAL DISORDER [None]
  - COUGH [None]
  - DYSPHONIA [None]
  - DYSPNOEA [None]
  - LUNG DISORDER [None]
  - SALIVARY HYPERSECRETION [None]
  - SLEEP APNOEA SYNDROME [None]
  - WHEEZING [None]
